FAERS Safety Report 20658258 (Version 1)
Quarter: 2022Q1

REPORT INFORMATION
  Report Type: Spontaneous
  Country: US (occurrence: US)
  Receive Date: 20220331
  Receipt Date: 20220331
  Transmission Date: 20220423
  Serious: Yes (Other)
  Sender: FDA-Public Use
  Company Number: US-Shilpa Medicare Limited-SML-US-2022-00293

PATIENT
  Age: 75 Year
  Sex: Female

DRUGS (4)
  1. IMATINIB [Suspect]
     Active Substance: IMATINIB
     Indication: Chronic myeloid leukaemia
  2. IMATINIB [Suspect]
     Active Substance: IMATINIB
  3. IMATINIB [Suspect]
     Active Substance: IMATINIB
  4. IMATINIB [Suspect]
     Active Substance: IMATINIB

REACTIONS (3)
  - Muscle spasms [Recovering/Resolving]
  - Periorbital oedema [Recovering/Resolving]
  - Philadelphia chromosome positive [Recovered/Resolved]

NARRATIVE: CASE EVENT DATE: 20120101
